FAERS Safety Report 5523454-6 (Version None)
Quarter: 2007Q4

REPORT INFORMATION
  Report Type: 
  Country: None (occurrence: None)
  Receive Date: 20071121
  Receipt Date: 20071112
  Transmission Date: 20080405
  Serious: Yes (Hospitalization)
  Sender: FDA-Public Use
  Company Number: US-JNJFOC-20071104852

PATIENT
  Age: 37 Year
  Sex: Female

DRUGS (2)
  1. DURAGESIC-100 [Suspect]
     Indication: DRUG USE FOR UNKNOWN INDICATION
     Route: 062
  2. INVEGA [Concomitant]
     Route: 048

REACTIONS (2)
  - CRANIAL OPERATION [None]
  - INTENTIONAL DRUG MISUSE [None]
